FAERS Safety Report 10149391 (Version 1)
Quarter: 2014Q2

REPORT INFORMATION
  Report Type: Spontaneous
  Country: US (occurrence: None)
  Receive Date: 20140501
  Receipt Date: 20140501
  Transmission Date: 20141212
  Serious: Yes (Hospitalization)
  Sender: FDA-Public Use
  Company Number: None

PATIENT
  Age: 89 Year
  Sex: Male

DRUGS (3)
  1. WARFARIN [Suspect]
     Indication: CORONARY ARTERY DISEASE
     Route: 048
     Dates: start: 20130830, end: 20130830
  2. ASPIRIN [Concomitant]
  3. WARFARIN [Concomitant]

REACTIONS (3)
  - Fall [None]
  - Extradural haematoma [None]
  - Head injury [None]
